FAERS Safety Report 5034666-2 (Version None)
Quarter: 2006Q2

REPORT INFORMATION
  Report Type: 
  Country: None (occurrence: None)
  Receive Date: 20060621
  Receipt Date: 20060608
  Transmission Date: 20061013
  Serious: No
  Sender: FDA-Public Use
  Company Number: FR200606002457

PATIENT
  Age: 55 Year
  Sex: Female

DRUGS (5)
  1. ZYPREXA [Suspect]
     Dosage: 7.5 MG, 2/D, ORAL
     Route: 048
     Dates: start: 20040101
  2. LORAZEPAM [Concomitant]
  3. AMITRIPTYLINE HCL [Concomitant]
  4. VASTAREL                     (TRIMETAZIDINE HYDROCHLORIDE) [Concomitant]
  5. SEGLOR                    (DIHYDROERGOTAMINE MESILATE) [Concomitant]

REACTIONS (5)
  - ANXIETY [None]
  - CONSTIPATION [None]
  - MENSTRUAL DISORDER [None]
  - NERVOUSNESS [None]
  - WEIGHT DECREASED [None]
